FAERS Safety Report 23119109 (Version 1)
Quarter: 2023Q4

REPORT INFORMATION
  Report Type: Spontaneous
  Country: US (occurrence: US)
  Receive Date: 20231028
  Receipt Date: 20231028
  Transmission Date: 20240110
  Serious: Yes (Other)
  Sender: FDA-Public Use
  Company Number: US-drreddys-SPO/USA/23/0180425

PATIENT
  Age: 80 Year
  Sex: Male

DRUGS (5)
  1. QUETIAPINE [Suspect]
     Active Substance: QUETIAPINE
     Indication: Dementia with Lewy bodies
     Dosage: AT BEDTIME
  2. SERTRALINE [Concomitant]
     Active Substance: SERTRALINE HYDROCHLORIDE
  3. MELATONIN [Concomitant]
     Active Substance: MELATONIN
     Indication: Night sweats
  4. MELATONIN [Concomitant]
     Active Substance: MELATONIN
     Indication: Nightmare
  5. MELATONIN [Concomitant]
     Active Substance: MELATONIN
     Indication: Depressive symptom

REACTIONS (7)
  - Hallucination, visual [Unknown]
  - Screaming [Recovered/Resolved]
  - Agitation [Unknown]
  - Incoherent [Recovered/Resolved]
  - Paradoxical drug reaction [Recovered/Resolved]
  - Sedation complication [Recovered/Resolved]
  - Confusional state [Recovered/Resolved]
